FAERS Safety Report 17938591 (Version 3)
Quarter: 2020Q3

REPORT INFORMATION
  Report Type: Report from Study
  Country: KR (occurrence: KR)
  Receive Date: 20200625
  Receipt Date: 20200706
  Transmission Date: 20201103
  Serious: Yes (Hospitalization)
  Sender: FDA-Public Use
  Company Number: KR-ROCHE-2629651

PATIENT
  Age: 65 Year
  Sex: Female
  Weight: 57.5 kg

DRUGS (4)
  1. ATEZOLIZUMAB. [Suspect]
     Active Substance: ATEZOLIZUMAB
     Indication: NEOPLASM MALIGNANT
     Dosage: DATE OF LAST DOSE ADMINISTERED PRIOR TO ONSET OF ADVERSE EVENT ON 04/JUN/2020
     Route: 041
     Dates: start: 20200219
  2. BEVACIZUMAB. [Suspect]
     Active Substance: BEVACIZUMAB
     Indication: NEOPLASM MALIGNANT
     Dosage: DATE OF LAST DOSE ADMINISTERED PRIOR TO ONSET OF ADVERSE EVENT ON 04/JUN/2020
     Route: 042
     Dates: start: 20200219
  3. PACLITAXEL. [Suspect]
     Active Substance: PACLITAXEL
     Indication: NEOPLASM MALIGNANT
     Dosage: DATE OF LAST DOSE ADMINISTERED PRIOR TO ONSET OF ADVERSE EVENT ON 14/APR/2020.
     Route: 042
     Dates: start: 20200219
  4. CARBOPLATIN. [Suspect]
     Active Substance: CARBOPLATIN
     Indication: NEOPLASM MALIGNANT
     Dosage: DATE OF LAST DOSE ADMINISTERED PRIOR TO ONSET OF ADVERSE EVENT ON 14/ APR/2020.
     Route: 042
     Dates: start: 20200219

REACTIONS (1)
  - Hyponatraemia [Recovering/Resolving]

NARRATIVE: CASE EVENT DATE: 20200620
